FAERS Safety Report 12462242 (Version 4)
Quarter: 2016Q4

REPORT INFORMATION
  Report Type: Report from Study
  Country: US (occurrence: US)
  Receive Date: 20160613
  Receipt Date: 20161025
  Transmission Date: 20170207
  Serious: Yes (Other)
  Sender: FDA-Public Use
  Company Number: US-AMGEN-USASL2016073198

PATIENT
  Age: 17 Year
  Sex: Female

DRUGS (5)
  1. METHOTREXATE. [Suspect]
     Active Substance: METHOTREXATE
     Indication: PRODUCT USED FOR UNKNOWN INDICATION
     Dosage: UNK
     Route: 065
     Dates: start: 2016
  2. ENBREL [Suspect]
     Active Substance: ETANERCEPT
     Indication: JUVENILE IDIOPATHIC ARTHRITIS
     Dosage: 25 MG, QWK
     Route: 065
     Dates: start: 20160520
  3. PREDNISONE. [Suspect]
     Active Substance: PREDNISONE
     Indication: PRODUCT USED FOR UNKNOWN INDICATION
     Dosage: UNK
     Route: 065
     Dates: end: 20160609
  4. NAPROSYN [Concomitant]
     Active Substance: NAPROXEN
     Indication: JUVENILE IDIOPATHIC ARTHRITIS
     Dosage: UNK
  5. ENBREL [Suspect]
     Active Substance: ETANERCEPT
     Dosage: 50 MG, QWK
     Route: 065
     Dates: start: 2016, end: 2016

REACTIONS (20)
  - Muscle spasms [Unknown]
  - Injection site bruising [Unknown]
  - Injection site pruritus [Unknown]
  - Juvenile idiopathic arthritis [Unknown]
  - Urticaria [Not Recovered/Not Resolved]
  - Heart rate increased [Unknown]
  - Palpitations [Unknown]
  - Eye infection [Unknown]
  - Injection site erythema [Unknown]
  - Ear infection [Unknown]
  - Nausea [Not Recovered/Not Resolved]
  - Pain [Recovering/Resolving]
  - Headache [Unknown]
  - Blood glucose abnormal [Unknown]
  - Weight decreased [Unknown]
  - Stress [Recovered/Resolved]
  - Blood magnesium decreased [Unknown]
  - Dyspnoea [Unknown]
  - Injection site pain [Unknown]
  - Peripheral swelling [Not Recovered/Not Resolved]

NARRATIVE: CASE EVENT DATE: 2016
